FAERS Safety Report 8517259-1 (Version None)
Quarter: 2012Q3

REPORT INFORMATION
  Report Type: 
  Country: None (occurrence: None)
  Receive Date: 20120706
  Receipt Date: 20120630
  Transmission Date: 20120928
  Serious: Yes (Hospitalization, Disabling, Other)
  Sender: FDA-Public Use
  Company Number: AUR-APL-2011-01138

PATIENT
  Age: 70 Year
  Sex: Male
  Weight: 106.5 kg

DRUGS (40)
  1. VIAGRA [Suspect]
     Indication: PRODUCT USED FOR UNKNOWN INDICATION
  2. LOSARTAN POTASSIUM [Concomitant]
  3. ISTALOL(TIMOLOL MALEATE) [Concomitant]
  4. XALATAN [Suspect]
     Indication: PRODUCT USED FOR UNKNOWN INDICATION
     Dosage: OPHTHALMIC
     Route: 047
  5. TRAMADOL HYDROCHLORIDE [Suspect]
     Indication: PRODUCT USED FOR UNKNOWN INDICATION
  6. ZOCOR [Suspect]
     Indication: PRODUCT USED FOR UNKNOWN INDICATION
  7. ZETIA [Suspect]
     Indication: PRODUCT USED FOR UNKNOWN INDICATION
  8. PROZAC [Suspect]
     Indication: PRODUCT USED FOR UNKNOWN INDICATION
  9. LUVOX [Suspect]
     Indication: PRODUCT USED FOR UNKNOWN INDICATION
  10. CODEINE SULFATE [Suspect]
     Indication: PRODUCT USED FOR UNKNOWN INDICATION
  11. CYCLOSPORINE [Suspect]
     Indication: PRODUCT USED FOR UNKNOWN INDICATION
  12. METFORMIN HYDROCHLORIDE [Suspect]
     Indication: DIABETES MELLITUS
     Dosage: (500 MG),
     Dates: start: 20101018
  13. METOPROLOL TARTRATE [Suspect]
     Indication: HYPERTENSION
     Dosage: 50 MG (25 MG, 2 IN 1 D),ORAL
     Route: 048
     Dates: start: 20090101
  14. MOTRIN [Suspect]
     Indication: PRODUCT USED FOR UNKNOWN INDICATION
  15. VICODIN [Concomitant]
  16. ASPIRIN [Concomitant]
  17. OXYCODONE HCL [Concomitant]
  18. DIAZEPAM [Concomitant]
  19. FISH OIL(FISH OIL) [Concomitant]
  20. DIGOXIN [Concomitant]
  21. PILOCARPINE [Concomitant]
  22. COREG [Suspect]
     Indication: CARDIAC DISORDER
  23. POTASSIUM CHLORIDE [Concomitant]
  24. THERA TEARS(CARMELLOSE) [Concomitant]
  25. IBUPROFEN [Suspect]
     Indication: BACK PAIN
     Dosage: (200 MG , AS REQUIRED),
     Dates: start: 20020101, end: 20110101
  26. TOPROL-XL [Suspect]
     Indication: PRODUCT USED FOR UNKNOWN INDICATION
  27. ALLOPURINOL [Concomitant]
  28. LANTUS [Concomitant]
  29. BILBERRY(VACCINIUM MYRTILLUS) [Concomitant]
  30. CLOZAPINE [Concomitant]
  31. ALPRAZOLAM [Suspect]
     Indication: PRODUCT USED FOR UNKNOWN INDICATION
  32. REGLAN [Suspect]
     Indication: PRODUCT USED FOR UNKNOWN INDICATION
  33. PLAVIX [Suspect]
     Indication: PRODUCT USED FOR UNKNOWN INDICATION
  34. GLUCOPHAGE [Suspect]
     Indication: PRODUCT USED FOR UNKNOWN INDICATION
  35. PRAVASTATIN [Concomitant]
  36. LIPITOR [Suspect]
     Indication: PRODUCT USED FOR UNKNOWN INDICATION
  37. PROSCAR [Suspect]
     Indication: PRODUCT USED FOR UNKNOWN INDICATION
  38. LOTRIMIN [Suspect]
     Indication: PRODUCT USED FOR UNKNOWN INDICATION
  39. FUROSEMIDE(FUROSEMIDE) [Concomitant]
  40. FOLIC ACID [Concomitant]

REACTIONS (13)
  - FATIGUE [None]
  - MYALGIA [None]
  - BACK PAIN [None]
  - NAUSEA [None]
  - CONSTIPATION [None]
  - ASTHENIA [None]
  - HIP ARTHROPLASTY [None]
  - VOMITING [None]
  - BLOOD GLUCOSE INCREASED [None]
  - DYSPNOEA [None]
  - SLEEP DISORDER [None]
  - ABASIA [None]
  - SKIN IRRITATION [None]
